FAERS Safety Report 5660212-6 (Version None)
Quarter: 2008Q1

REPORT INFORMATION
  Report Type: 
  Country: None (occurrence: None)
  Receive Date: 20080212
  Receipt Date: 20071206
  Transmission Date: 20080703
  Serious: Yes (Other)
  Sender: FDA-Public Use
  Company Number: MC200700728

PATIENT
  Sex: Female

DRUGS (2)
  1. ANGIOMAX [Suspect]
     Dosage: 0.75 MG/KG, BOLUS, IV BOLUS; 1.75 MG/KG, HR, INTRAVENOUS
     Route: 040
  2. MIDAZOLAM HCL [Concomitant]

REACTIONS (1)
  - CATHETER RELATED COMPLICATION [None]
